FAERS Safety Report 17518769 (Version 1)
Quarter: 2020Q1

REPORT INFORMATION
  Report Type: Spontaneous
  Country: HU (occurrence: HU)
  Receive Date: 20200309
  Receipt Date: 20200309
  Transmission Date: 20200409
  Serious: Yes (Other)
  Sender: FDA-Public Use
  Company Number: NVSC2020HU058743

PATIENT

DRUGS (1)
  1. AKTIL DUO (AMOXICILLIN TRIHYDRATE\POTASSIUM CLAVULANATE) [Suspect]
     Active Substance: AMOXICILLIN\CLAVULANATE POTASSIUM
     Indication: PRODUCT USED FOR UNKNOWN INDICATION
     Dosage: 1000 MG, BID
     Route: 065

REACTIONS (3)
  - Pancreatitis [Unknown]
  - Faeces discoloured [Recovered/Resolved]
  - Hepatic steatosis [Not Recovered/Not Resolved]
